FAERS Safety Report 18053153 (Version 1)
Quarter: 2020Q3

REPORT INFORMATION
  Report Type: Spontaneous
  Country: CN (occurrence: CN)
  Receive Date: 20200722
  Receipt Date: 20200722
  Transmission Date: 20201103
  Serious: Yes (Other)
  Sender: FDA-Public Use
  Company Number: CN-BAXTER-2020BAX014726

PATIENT
  Age: 39 Year
  Sex: Female
  Weight: 57.6 kg

DRUGS (6)
  1. 0.9% SODIUM CHLORIDE INJECTION [Suspect]
     Active Substance: SODIUM CHLORIDE
     Indication: MEDICATION DILUTION
     Dosage: ENDOXAN 940 MG + 0.9% SODIUM CHLORIDE 100ML
     Route: 041
     Dates: start: 20200618, end: 20200618
  2. ENDOXAN [Suspect]
     Active Substance: CYCLOPHOSPHAMIDE
     Indication: HER2 NEGATIVE BREAST CANCER
  3. FAMAXIN (EPIRUBICIN HYDROCHLORIDE) [Suspect]
     Active Substance: EPIRUBICIN HYDROCHLORIDE
     Indication: HER2 NEGATIVE BREAST CANCER
  4. ENDOXAN [Suspect]
     Active Substance: CYCLOPHOSPHAMIDE
     Indication: HORMONE RECEPTOR POSITIVE BREAST CANCER
     Dosage: ENDOXAN 940 MG + 0.9% SODIUM CHLORIDE 100ML
     Route: 041
     Dates: start: 20200618, end: 20200618
  5. STERILE WATER FOR INJECTION [Suspect]
     Active Substance: WATER
     Indication: MEDICATION DILUTION
     Dosage: FAMAXIN 113 MG + STERILE WATER FOR INJECTION 56.5ML
     Route: 042
     Dates: start: 20200618, end: 20200618
  6. FAMAXIN (EPIRUBICIN HYDROCHLORIDE) [Suspect]
     Active Substance: EPIRUBICIN HYDROCHLORIDE
     Indication: HORMONE RECEPTOR POSITIVE BREAST CANCER
     Dosage: FAMAXIN 113 MG + STERILE WATER FOR INJECTION 56.5ML
     Route: 042
     Dates: start: 20200618, end: 20200618

REACTIONS (2)
  - Leukopenia [Recovered/Resolved]
  - Neutropenia [Recovered/Resolved]

NARRATIVE: CASE EVENT DATE: 20200629
